FAERS Safety Report 4752174-0 (Version None)
Quarter: 2005Q3

REPORT INFORMATION
  Report Type: 
  Country: None (occurrence: None)
  Receive Date: 20050824
  Receipt Date: 20050824
  Transmission Date: 20060218
  Serious: Yes (Hospitalization)
  Sender: FDA-Public Use
  Company Number: None

PATIENT
  Age: 57 Year
  Sex: Male
  Weight: 121.3 kg

DRUGS (8)
  1. DOCETAXEL [Suspect]
     Indication: PROSTATE CANCER
     Dosage: 36MG/M2, D1,8, IV
     Route: 042
     Dates: start: 20050630
  2. CAPECITABINE [Suspect]
     Indication: PROSTATE CANCER
     Dosage: 1250MG/M2, D5-18, PO
     Route: 048
     Dates: start: 20050704
  3. COUMADIN [Concomitant]
  4. LOPRESSOR [Concomitant]
  5. CALCITRIOL [Concomitant]
  6. HYDROCHLOROTHIAZIDE [Concomitant]
  7. DECADRON [Concomitant]
  8. ALLEGRA [Concomitant]

REACTIONS (11)
  - ACTIVATED PARTIAL THROMBOPLASTIN TIME PROLONGED [None]
  - BLOOD ALBUMIN DECREASED [None]
  - BLOOD BILIRUBIN INCREASED [None]
  - ERYTHEMA [None]
  - FISTULA [None]
  - FLUCTUANCE [None]
  - PERIRECTAL ABSCESS [None]
  - PROCTALGIA [None]
  - PROTHROMBIN TIME PROLONGED [None]
  - TENDERNESS [None]
  - WHITE BLOOD CELL COUNT INCREASED [None]
